FAERS Safety Report 4812467-5 (Version None)
Quarter: 2005Q4

REPORT INFORMATION
  Report Type: 
  Country: None (occurrence: None)
  Receive Date: 20051028
  Receipt Date: 20050131
  Transmission Date: 20060501
  Serious: No
  Sender: FDA-Public Use
  Company Number: US-GLAXOSMITHKLINE-A0543574A

PATIENT
  Age: 47 Year
  Sex: Female
  Weight: 72.7 kg

DRUGS (1)
  1. ADVAIR DISKUS 100/50 [Suspect]
     Indication: CHRONIC OBSTRUCTIVE PULMONARY DISEASE
     Route: 055
     Dates: start: 20010101, end: 20050101

REACTIONS (2)
  - DYSPHONIA [None]
  - THROAT IRRITATION [None]
